FAERS Safety Report 24188773 (Version 1)
Quarter: 2024Q3

REPORT INFORMATION
  Report Type: Spontaneous
  Country: US (occurrence: US)
  Receive Date: 20240808
  Receipt Date: 20240808
  Transmission Date: 20241017
  Serious: No
  Sender: OTSUKA
  Company Number: US-OTSUKA-2024_000209

PATIENT
  Age: 44 Year
  Sex: Male
  Weight: 122.47 kg

DRUGS (1)
  1. ABILIFY MAINTENA [Suspect]
     Active Substance: ARIPIPRAZOLE
     Indication: Bipolar disorder
     Dosage: 300 MG
     Route: 065
     Dates: start: 202101

REACTIONS (2)
  - Product storage error [Unknown]
  - Underdose [Unknown]

NARRATIVE: CASE EVENT DATE: 20210101
